FAERS Safety Report 14701618 (Version 1)
Quarter: 2018Q1

REPORT INFORMATION
  Report Type: Spontaneous
  Country: PT (occurrence: PT)
  Receive Date: 20180331
  Receipt Date: 20180331
  Transmission Date: 20180509
  Serious: Yes (Other)
  Sender: FDA-Public Use
  Company Number: PT-AUROBINDO-AUR-APL-2018-016998

PATIENT
  Sex: Female

DRUGS (16)
  1. CAPECITABINE. [Suspect]
     Active Substance: CAPECITABINE
     Dosage: ()
     Route: 065
  2. HERCEPTIN [Suspect]
     Active Substance: TRASTUZUMAB
     Indication: BREAST CANCER METASTATIC
     Dosage: ()
     Route: 065
     Dates: start: 201104, end: 2017
  3. DOCETAXEL. [Suspect]
     Active Substance: DOCETAXEL
     Indication: BREAST CANCER METASTATIC
     Dosage: ()
     Route: 065
     Dates: start: 200604, end: 200608
  4. LAPATINIB [Suspect]
     Active Substance: LAPATINIB
     Indication: BREAST CANCER METASTATIC
     Dosage: ()
     Route: 065
     Dates: start: 201503, end: 201608
  5. VINORELBINE [Suspect]
     Active Substance: VINORELBINE\VINORELBINE TARTRATE
     Dosage: ()
     Route: 065
     Dates: start: 201104, end: 201111
  6. METHYLPREDNISOLONE. [Concomitant]
     Active Substance: METHYLPREDNISOLONE
     Dosage: ()
  7. METHYLPREDNISOLONE. [Concomitant]
     Active Substance: METHYLPREDNISOLONE
     Dosage: ()
  8. ZOLEDRONIC ACID [Suspect]
     Active Substance: ZOLEDRONIC ACID
     Indication: BREAST CANCER METASTATIC
     Dosage: ()
     Route: 065
     Dates: start: 201402, end: 201608
  9. TRASTUZUMAB EMTANSINE [Suspect]
     Active Substance: ADO-TRASTUZUMAB EMTANSINE
     Indication: BREAST CANCER METASTATIC
     Dosage: 260 MILLIGRAM
     Route: 042
     Dates: start: 201610, end: 201706
  10. METHYLPREDNISOLONE. [Concomitant]
     Active Substance: METHYLPREDNISOLONE
     Dosage: ()
  11. CAPECITABINE. [Suspect]
     Active Substance: CAPECITABINE
     Indication: BREAST CANCER METASTATIC
     Dosage: ()
     Route: 065
     Dates: start: 201503, end: 201507
  12. CAPECITABINE. [Suspect]
     Active Substance: CAPECITABINE
     Dosage: ()
     Route: 065
     Dates: start: 201503, end: 201507
  13. EPIRUBICIN [Suspect]
     Active Substance: EPIRUBICIN
     Indication: BREAST CANCER METASTATIC
     Dosage: ()
     Route: 065
     Dates: start: 200604, end: 200608
  14. VINORELBINE [Suspect]
     Active Substance: VINORELBINE\VINORELBINE TARTRATE
     Dosage: ()
     Route: 065
     Dates: start: 201402, end: 201501
  15. HERCEPTIN [Suspect]
     Active Substance: TRASTUZUMAB
     Dosage: ()
     Route: 065
     Dates: start: 201104, end: 201507
  16. HERCEPTIN [Suspect]
     Active Substance: TRASTUZUMAB
     Dosage: ()
     Route: 065
     Dates: start: 200612, end: 200712

REACTIONS (7)
  - Skin exfoliation [Unknown]
  - Perianal erythema [Unknown]
  - Infusion related reaction [Recovered/Resolved]
  - Hepatic enzyme abnormal [Unknown]
  - Cholestasis [Unknown]
  - Asthenia [Unknown]
  - Palmar-plantar erythrodysaesthesia syndrome [Unknown]

NARRATIVE: CASE EVENT DATE: 2015
